FAERS Safety Report 25405428 (Version 1)
Quarter: 2025Q2

REPORT INFORMATION
  Report Type: Spontaneous
  Country: HU (occurrence: HU)
  Receive Date: 20250606
  Receipt Date: 20250606
  Transmission Date: 20250716
  Serious: Yes (Life-Threatening)
  Sender: ROCHE
  Company Number: HU-ROCHE-10000304442

PATIENT
  Age: 63 Year
  Sex: Female

DRUGS (1)
  1. AVASTIN [Suspect]
     Active Substance: BEVACIZUMAB
     Indication: Glioblastoma multiforme
     Route: 065

REACTIONS (8)
  - Fatigue [Unknown]
  - Nausea [Unknown]
  - Vomiting [Unknown]
  - Aphasia [Unknown]
  - Confusional state [Unknown]
  - Somnolence [Unknown]
  - Decreased appetite [Unknown]
  - Glioblastoma multiforme [Unknown]
